FAERS Safety Report 9154803 (Version 1)
Quarter: 2013Q1

REPORT INFORMATION
  Report Type: Spontaneous
  Country: DK (occurrence: CH)
  Receive Date: 20130311
  Receipt Date: 20130311
  Transmission Date: 20140127
  Serious: Yes (Life-Threatening)
  Sender: FDA-Public Use
  Company Number: CH-FRI-1000043209

PATIENT
  Sex: Female

DRUGS (12)
  1. CITALOPRAM [Suspect]
     Dosage: 10 MG
     Route: 048
     Dates: start: 201212
  2. CITALOPRAM [Suspect]
     Dosage: 15 MG
     Dates: start: 20130121
  3. CITALOPRAM [Suspect]
     Dosage: 5 MG
     Dates: start: 20130201
  4. TEMESTA [Concomitant]
     Dosage: 0.5 MG
  5. NEXIUM [Concomitant]
     Dosage: 20 MG
  6. EZETROL [Concomitant]
     Dosage: 10 MG
  7. SIMVASTATINE [Concomitant]
     Dosage: 20 MG
  8. EUTHYROX [Concomitant]
  9. LANTUS [Concomitant]
  10. DEPAKINE CHRONO [Concomitant]
     Dosage: 1000 MG
  11. IRON [Concomitant]
  12. FOLIC ACID [Concomitant]

REACTIONS (3)
  - Thrombocytopenia [Unknown]
  - Anaemia [Unknown]
  - Nephrogenic diabetes insipidus [Unknown]
